FAERS Safety Report 14405522 (Version 7)
Quarter: 2019Q3

REPORT INFORMATION
  Report Type: Spontaneous
  Country: US (occurrence: US)
  Receive Date: 20180118
  Receipt Date: 20190926
  Transmission Date: 20191004
  Serious: Yes (Hospitalization, Other)
  Sender: FDA-Public Use
  Company Number: US-PFIZER INC-2018022340

PATIENT
  Age: 66 Year
  Sex: Female

DRUGS (1)
  1. XELJANZ XR [Suspect]
     Active Substance: TOFACITINIB CITRATE
     Indication: RHEUMATOID ARTHRITIS
     Dosage: 11 MG, 1X/DAY
     Route: 048
     Dates: start: 201905

REACTIONS (7)
  - Haemoglobin decreased [Unknown]
  - Gout [Unknown]
  - Abscess [Unknown]
  - Product dose omission [Unknown]
  - Gastrointestinal haemorrhage [Unknown]
  - Mass [Unknown]
  - Memory impairment [Unknown]
